FAERS Safety Report 5394102-3 (Version None)
Quarter: 2007Q3

REPORT INFORMATION
  Report Type: 
  Country: None (occurrence: None)
  Receive Date: 20070723
  Receipt Date: 20070314
  Transmission Date: 20080115
  Serious: No
  Sender: FDA-Public Use
  Company Number: A0643231A

PATIENT
  Age: 63 Year
  Sex: Female

DRUGS (8)
  1. AVANDIA [Suspect]
     Dosage: 4MG PER DAY
     Route: 048
  2. POTASSIUM CHLORIDE [Concomitant]
  3. LASIX [Concomitant]
  4. ALDACTONE [Concomitant]
  5. COZAAR [Concomitant]
  6. COREG [Concomitant]
  7. ZOCOR [Concomitant]
  8. METFORMIN HCL [Concomitant]

REACTIONS (1)
  - JOINT SWELLING [None]
